FAERS Safety Report 21608653 (Version 1)
Quarter: 2022Q4

REPORT INFORMATION
  Report Type: Spontaneous
  Country: CA (occurrence: CA)
  Receive Date: 20221117
  Receipt Date: 20221117
  Transmission Date: 20230113
  Serious: Yes (Hospitalization)
  Sender: FDA-Public Use
  Company Number: None

PATIENT
  Age: 83 Year
  Sex: Male
  Weight: 80 kg

DRUGS (19)
  1. CARBOPLATIN [Suspect]
     Active Substance: CARBOPLATIN
     Indication: Small cell lung cancer
     Dosage: 1 EVERY 21 DAYS
     Route: 042
  2. ETOPOSIDE [Suspect]
     Active Substance: ETOPOSIDE
     Indication: Small cell lung cancer
     Dosage: LIQUID INTRAVENOUS, 1 EVERY 21 DAYS
     Route: 042
  3. ACETAMINOPHEN [Concomitant]
     Active Substance: ACETAMINOPHEN
  4. ALFUZOSIN [Concomitant]
     Active Substance: ALFUZOSIN
     Dosage: EXTENDED RELEASE TABLET
  5. ALLOPURINOL [Concomitant]
     Active Substance: ALLOPURINOL
  6. CICLESONIDE [Concomitant]
     Active Substance: CICLESONIDE
  7. COLCHICINE [Concomitant]
     Active Substance: COLCHICINE
  8. DOCUSATE SODIUM [Concomitant]
     Active Substance: DOCUSATE SODIUM
  9. FUROSEMIDE [Concomitant]
     Active Substance: FUROSEMIDE
     Route: 065
  10. HYDROMORPHONE [Concomitant]
     Active Substance: HYDROMORPHONE
  11. LORAZEPAM [Concomitant]
     Active Substance: LORAZEPAM
     Route: 065
  12. PREGABALIN [Concomitant]
     Active Substance: PREGABALIN
  13. RISEDRONATE SODIUM [Concomitant]
     Active Substance: RISEDRONATE SODIUM
  14. ALBUTEROL [Concomitant]
     Active Substance: ALBUTEROL
     Dosage: INHALATION
  15. SPIRIVA RESPIMAT [Concomitant]
     Active Substance: TIOTROPIUM BROMIDE
     Dosage: SOLUTION INHALATION
  16. SYNTHROID [Concomitant]
     Active Substance: LEVOTHYROXINE SODIUM
  17. TIMOLOL [Concomitant]
     Active Substance: TIMOLOL
     Dosage: SOLUTION OPHTHALMIC
  18. VITAMIN D [Concomitant]
     Active Substance: VITAMIN D NOS
  19. ZOPICLONE [Concomitant]
     Active Substance: ZOPICLONE

REACTIONS (3)
  - Acute coronary syndrome [Recovered/Resolved]
  - Anaemia [Recovered/Resolved]
  - Cytopenia [Recovered/Resolved]
